FAERS Safety Report 5994116-6 (Version None)
Quarter: 2008Q4

REPORT INFORMATION
  Report Type: 
  Country: None (occurrence: None)
  Receive Date: 20081212
  Receipt Date: 20081209
  Transmission Date: 20090506
  Serious: Yes (Hospitalization)
  Sender: FDA-Public Use
  Company Number: ES-AVENTIS-200821414GDDC

PATIENT
  Age: 74 Year
  Sex: Female

DRUGS (4)
  1. ARAVA [Suspect]
     Indication: RHEUMATOID ARTHRITIS
     Dosage: DOSE: UNK
     Route: 048
     Dates: start: 20080301, end: 20080901
  2. METHOTREXATE [Suspect]
     Indication: RHEUMATOID ARTHRITIS
     Dosage: DOSE: UNK
     Route: 048
     Dates: start: 20080301, end: 20080901
  3. OMEPRAZOLE [Concomitant]
     Dosage: DOSE: UNK
  4. IBUPROFEN [Concomitant]
     Dosage: DOSE: UNK

REACTIONS (2)
  - HEPATITIS [None]
  - JAUNDICE [None]
